FAERS Safety Report 10927851 (Version 3)
Quarter: 2015Q1

REPORT INFORMATION
  Report Type: Spontaneous
  Country: AU (occurrence: AU)
  Receive Date: 20150319
  Receipt Date: 20150325
  Transmission Date: 20150721
  Serious: Yes (Death, Hospitalization)
  Sender: FDA-Public Use
  Company Number: PHHY2015AU030225

PATIENT
  Age: 62 Year
  Sex: Male

DRUGS (1)
  1. CLOZAPINE. [Suspect]
     Active Substance: CLOZAPINE
     Indication: SCHIZOPHRENIA
     Dosage: 500 MG, QD
     Route: 065
     Dates: start: 1997

REACTIONS (7)
  - Electrocardiogram QRS complex prolonged [Recovered/Resolved]
  - Myocarditis [Recovered/Resolved]
  - Systolic dysfunction [Recovered/Resolved]
  - Lethargy [Recovered/Resolved]
  - Renal failure [Fatal]
  - Electrocardiogram T wave inversion [Recovered/Resolved]
  - Hypokinesia [Recovered/Resolved]
